FAERS Safety Report 8261240-7 (Version None)
Quarter: 2012Q2

REPORT INFORMATION
  Report Type: 
  Country: None (occurrence: None)
  Receive Date: 20120405
  Receipt Date: 20120327
  Transmission Date: 20120825
  Serious: Yes (Other)
  Sender: FDA-Public Use
  Company Number: US-US-EMD SERONO, INC.-7120689

PATIENT
  Sex: Female
  Weight: 45 kg

DRUGS (1)
  1. REBIF [Suspect]
     Indication: PRODUCT USED FOR UNKNOWN INDICATION
     Route: 058
     Dates: start: 20060824, end: 20120201

REACTIONS (2)
  - PULMONARY HYPERTENSION [None]
  - RAYNAUD'S PHENOMENON [None]
